FAERS Safety Report 5729344-8 (Version None)
Quarter: 2008Q2

REPORT INFORMATION
  Report Type: 
  Country: None (occurrence: None)
  Receive Date: 20080506
  Receipt Date: 20080428
  Transmission Date: 20081010
  Serious: Yes (Other)
  Sender: FDA-Public Use
  Company Number: FR-GENENTECH-260185

PATIENT
  Age: 77 Year
  Sex: Female

DRUGS (6)
  1. LUCENTIS [Suspect]
     Indication: DRUG USE FOR UNKNOWN INDICATION
     Dosage: UNK, UNK
     Route: 031
     Dates: start: 20080101
  2. ZOCOR [Concomitant]
     Indication: DRUG USE FOR UNKNOWN INDICATION
  3. VASTAREL [Concomitant]
     Indication: DRUG USE FOR UNKNOWN INDICATION
  4. CATAPRES [Concomitant]
     Indication: DRUG USE FOR UNKNOWN INDICATION
  5. MICARDIS [Concomitant]
     Indication: DRUG USE FOR UNKNOWN INDICATION
  6. BIPRETERAX [Concomitant]
     Indication: DRUG USE FOR UNKNOWN INDICATION

REACTIONS (4)
  - ERYSIPELAS [None]
  - HYPERKERATOSIS [None]
  - RASH ERYTHEMATOUS [None]
  - SKIN FISSURES [None]
